FAERS Safety Report 17560790 (Version 1)
Quarter: 2020Q1

REPORT INFORMATION
  Report Type: Spontaneous
  Country: FR (occurrence: FR)
  Receive Date: 20200319
  Receipt Date: 20200319
  Transmission Date: 20200409
  Serious: Yes (Other)
  Sender: FDA-Public Use
  Company Number: FR-009507513-2003FRA006547

PATIENT
  Age: 71 Year
  Sex: Female
  Weight: 85 kg

DRUGS (7)
  1. KEYTRUDA [Suspect]
     Active Substance: PEMBROLIZUMAB
     Indication: BLADDER CANCER
     Dosage: 1 INJECTION
     Route: 041
     Dates: start: 20200120, end: 20200120
  2. ATORVASTATIN [Concomitant]
     Active Substance: ATORVASTATIN
     Indication: PRODUCT USED FOR UNKNOWN INDICATION
     Dosage: 10 MILLIGRAM, QD
     Route: 048
  3. VERAPAMIL HYDROCHLORIDE. [Concomitant]
     Active Substance: VERAPAMIL HYDROCHLORIDE
     Indication: HYPERTENSION
     Dosage: 120 MILLIGRAM, QD
     Route: 048
  4. ESOMEPRAZOLE. [Concomitant]
     Active Substance: ESOMEPRAZOLE MAGNESIUM
     Indication: PRODUCT USED FOR UNKNOWN INDICATION
     Dosage: 20 MILLIGRAM, QD
     Route: 048
     Dates: end: 20200211
  5. XARELTO [Concomitant]
     Active Substance: RIVAROXABAN
     Indication: PULMONARY EMBOLISM
     Dosage: 20 MILLIGRAM, QD
     Route: 048
  6. EPINITRIL [Concomitant]
     Active Substance: NITROGLYCERIN
     Indication: HEART DISEASE CONGENITAL
     Dosage: 10 MILLIGRAM, QD
     Route: 062
  7. PRETERAX (INDAPAMIDE (+) PERINDOPRIL ARGININE) [Concomitant]
     Active Substance: INDAPAMIDE\PERINDOPRIL
     Indication: HYPERTENSION
     Dosage: 1 DOSAGE FORM, QD
     Route: 048
     Dates: end: 20200209

REACTIONS (4)
  - Uveitis [Recovering/Resolving]
  - Nephropathy [Recovering/Resolving]
  - Mononeuropathy multiplex [Not Recovered/Not Resolved]
  - Pachymeningitis [Recovering/Resolving]

NARRATIVE: CASE EVENT DATE: 20200213
